FAERS Safety Report 5601534-4 (Version None)
Quarter: 2008Q1

REPORT INFORMATION
  Report Type: 
  Country: None (occurrence: None)
  Receive Date: 20080124
  Receipt Date: 20080115
  Transmission Date: 20080703
  Serious: Yes (Other)
  Sender: FDA-Public Use
  Company Number: US-JNJFOC-20071205921

PATIENT
  Sex: Male

DRUGS (42)
  1. RISPERDAL CONSTA [Suspect]
     Route: 030
  2. RISPERDAL CONSTA [Suspect]
     Route: 030
  3. RISPERDAL CONSTA [Suspect]
     Route: 030
  4. RISPERDAL CONSTA [Suspect]
     Route: 030
  5. RISPERDAL CONSTA [Suspect]
     Route: 030
  6. RISPERDAL CONSTA [Suspect]
     Route: 030
  7. RISPERDAL CONSTA [Suspect]
     Route: 030
  8. RISPERDAL CONSTA [Suspect]
     Route: 030
  9. RISPERDAL CONSTA [Suspect]
     Route: 030
  10. RISPERDAL CONSTA [Suspect]
     Route: 030
  11. RISPERDAL CONSTA [Suspect]
     Route: 030
  12. RISPERDAL CONSTA [Suspect]
     Route: 030
  13. RISPERDAL CONSTA [Suspect]
     Route: 030
  14. RISPERDAL CONSTA [Suspect]
     Route: 030
  15. RISPERDAL CONSTA [Suspect]
     Route: 030
  16. RISPERDAL CONSTA [Suspect]
     Route: 030
  17. RISPERDAL CONSTA [Suspect]
     Route: 030
  18. RISPERDAL CONSTA [Suspect]
     Route: 030
  19. RISPERDAL CONSTA [Suspect]
     Route: 030
  20. RISPERDAL CONSTA [Suspect]
     Route: 030
  21. RISPERDAL CONSTA [Suspect]
     Route: 030
  22. RISPERDAL CONSTA [Suspect]
     Route: 030
  23. RISPERDAL CONSTA [Suspect]
     Route: 030
  24. RISPERDAL CONSTA [Suspect]
     Route: 030
  25. RISPERDAL CONSTA [Suspect]
     Route: 030
  26. RISPERDAL CONSTA [Suspect]
     Route: 030
  27. RISPERDAL CONSTA [Suspect]
     Route: 030
  28. RISPERDAL CONSTA [Suspect]
     Route: 030
  29. RISPERDAL CONSTA [Suspect]
     Indication: BIPOLAR I DISORDER
     Route: 030
  30. TOPAMAX [Suspect]
     Dosage: 1/2 TABLETS BID
     Route: 048
  31. TOPAMAX [Suspect]
     Dosage: 1/2 TABLETS BID
     Route: 048
  32. TOPAMAX [Suspect]
     Dosage: 1/2 TABLETS BID
     Route: 048
  33. TOPAMAX [Suspect]
     Dosage: 1/2 TABLETS BID
     Route: 048
  34. TOPAMAX [Suspect]
     Dosage: 1/2 TABLETS BID
     Route: 048
  35. TOPAMAX [Suspect]
     Dosage: 1/2 TABLETS BID
     Route: 048
  36. TOPAMAX [Suspect]
     Dosage: 1/2 TABLETS BID
     Route: 048
  37. TOPAMAX [Suspect]
     Dosage: 1/2 TABLETS BID
     Route: 048
  38. TOPAMAX [Suspect]
     Dosage: 1/2 TABLETS BID
     Route: 048
  39. TOPAMAX [Suspect]
     Dosage: 1/2 TABLETS BID
     Route: 048
  40. TOPAMAX [Suspect]
     Dosage: 1/2 TABLETS BID
     Route: 048
  41. TOPAMAX [Suspect]
     Dosage: 1/2 TABLETS BID
     Route: 048
  42. TOPAMAX [Suspect]
     Indication: BIPOLAR I DISORDER
     Dosage: 1/2 TABLETS BID
     Route: 048

REACTIONS (6)
  - CHOLELITHIASIS [None]
  - FOLLICULITIS [None]
  - GASTRITIS [None]
  - HEART RATE IRREGULAR [None]
  - HORMONE LEVEL ABNORMAL [None]
  - SLEEP APNOEA SYNDROME [None]
